FAERS Safety Report 21054306 (Version 2)
Quarter: 2022Q3

REPORT INFORMATION
  Report Type: Spontaneous
  Country: JP (occurrence: JP)
  Receive Date: 20220707
  Receipt Date: 20220729
  Transmission Date: 20221026
  Serious: Yes (Other)
  Sender: FDA-Public Use
  Company Number: JP-Teva Takeda Yakuhin-2022-JP-002735J

PATIENT
  Age: 84 Year
  Sex: Female

DRUGS (1)
  1. ASPIRIN\LANSOPRAZOLE [Suspect]
     Active Substance: ASPIRIN\LANSOPRAZOLE
     Indication: Product used for unknown indication
     Dosage: DOSAGE IS UNKNOWN1 DOSAGE FORM = 100MG ASPIRIN + 15MG LANSOPRAZOLE
     Route: 048
     Dates: start: 2021

REACTIONS (1)
  - Internal haemorrhage [Recovered/Resolved]

NARRATIVE: CASE EVENT DATE: 20220101
